FAERS Safety Report 4590130-6 (Version None)
Quarter: 2005Q1

REPORT INFORMATION
  Report Type: 
  Country: None (occurrence: None)
  Receive Date: 20050217
  Receipt Date: 20050210
  Transmission Date: 20050727
  Serious: Yes (Other)
  Sender: FDA-Public Use
  Company Number: HQWYE261011FEB05

PATIENT
  Age: 69 Year
  Sex: Female

DRUGS (6)
  1. TAZOCIN (PIPERACILLIN/TAZOBACTAM, INJECTION) [Suspect]
     Indication: PYELONEPHRITIS
     Dosage: 2.5 G 2X PER 1 DAY
     Route: 041
     Dates: start: 20050113, end: 20050122
  2. FUROSEMIDE [Concomitant]
  3. LOCHOL (FLUVASTATIN SODIUM) [Concomitant]
  4. LACTATED RINGER'S (CALCIUM CHLORIDE DIHYDRATE/POTASSIUM CHLORIDE/SODIU [Concomitant]
  5. NARCARICIN (BENZBROMARONE) [Concomitant]
  6. SLOW-K [Concomitant]

REACTIONS (4)
  - HAEMOGLOBIN DECREASED [None]
  - PETECHIAE [None]
  - PLATELET COUNT DECREASED [None]
  - RED BLOOD CELL COUNT DECREASED [None]
